FAERS Safety Report 11625213 (Version 4)
Quarter: 2017Q3

REPORT INFORMATION
  Report Type: Report from Study
  Country: CA (occurrence: CA)
  Receive Date: 20151013
  Receipt Date: 20170824
  Transmission Date: 20171127
  Serious: Yes (Hospitalization)
  Sender: FDA-Public Use
  Company Number: CA-JNJFOC-20151004981

PATIENT
  Age: 11 Year
  Sex: Female
  Weight: 37.2 kg

DRUGS (2)
  1. REMICADE [Suspect]
     Active Substance: INFLIXIMAB
     Indication: CROHN^S DISEASE
     Route: 042
     Dates: start: 20150611
  2. REMICADE [Suspect]
     Active Substance: INFLIXIMAB
     Indication: CROHN^S DISEASE
     Route: 042
     Dates: start: 20150622

REACTIONS (11)
  - Vomiting [Unknown]
  - Oropharyngeal pain [Unknown]
  - Nausea [Unknown]
  - Pyrexia [Unknown]
  - Faeces soft [Unknown]
  - Flank pain [Unknown]
  - Off label use [Unknown]
  - Inflammatory bowel disease [Unknown]
  - Abdominal pain upper [Unknown]
  - Decreased appetite [Unknown]
  - Product use issue [Unknown]

NARRATIVE: CASE EVENT DATE: 20150611
